FAERS Safety Report 9120067 (Version 2)
Quarter: 2013Q2

REPORT INFORMATION
  Report Type: Report from Study
  Country: FR (occurrence: FR)
  Receive Date: 20130226
  Receipt Date: 20130506
  Transmission Date: 20140414
  Serious: Yes (Other)
  Sender: FDA-Public Use
  Company Number: PHHY2013FR015929

PATIENT
  Age: 57 Year
  Sex: Female
  Weight: 60 kg

DRUGS (9)
  1. ACZ885 [Suspect]
     Indication: MUCKLE-WELLS SYNDROME
     Dosage: 150 MG, EVERY 8 WEEKS
     Route: 058
     Dates: start: 20090219
  2. ACZ885 [Suspect]
     Dosage: UNK
     Route: 058
     Dates: start: 20120627
  3. ACZ885 [Suspect]
     Dosage: UNK
     Route: 058
     Dates: start: 20120822
  4. ACZ885 [Suspect]
     Dosage: UNK
     Route: 058
     Dates: start: 20121017
  5. ACZ885 [Suspect]
     Dosage: UNK
     Route: 058
     Dates: start: 20121212
  6. ACZ885 [Suspect]
     Dosage: UNK
     Route: 058
     Dates: start: 20130131
  7. PNEUMO 23 [Suspect]
     Indication: IMMUNISATION
     Dosage: UNK
     Route: 058
     Dates: start: 20130123
  8. AERIUS [Concomitant]
     Dosage: 1 DF, DAILY
  9. INFLUENZA VACCINE [Concomitant]
     Indication: IMMUNISATION
     Dates: start: 20121121

REACTIONS (11)
  - Joint ankylosis [Recovering/Resolving]
  - Pyrexia [Recovered/Resolved]
  - Injection site inflammation [Recovered/Resolved]
  - Injection site induration [Recovered/Resolved]
  - Injection site erythema [Recovered/Resolved]
  - Injection site warmth [Recovered/Resolved]
  - Ear infection [Recovered/Resolved]
  - Antibody test abnormal [Unknown]
  - Back pain [Unknown]
  - Fatigue [Unknown]
  - Vein disorder [Unknown]
